FAERS Safety Report 6060815-3 (Version None)
Quarter: 2009Q1

REPORT INFORMATION
  Report Type: 
  Country: None (occurrence: None)
  Receive Date: 20090202
  Receipt Date: 20090129
  Transmission Date: 20090719
  Serious: Yes (Other)
  Sender: FDA-Public Use
  Company Number: PHHY2009LT03202

PATIENT
  Age: 2 Year
  Sex: Male

DRUGS (2)
  1. ELIDEL [Suspect]
     Indication: DERMATITIS ATOPIC
     Route: 061
  2. ELIDEL [Suspect]
     Dosage: UNK
     Route: 048
     Dates: start: 20090126

REACTIONS (1)
  - ACCIDENTAL EXPOSURE [None]
